FAERS Safety Report 18060122 (Version 4)
Quarter: 2021Q4

REPORT INFORMATION
  Report Type: Spontaneous
  Country: US (occurrence: US)
  Receive Date: 20200723
  Receipt Date: 20211124
  Transmission Date: 20220303
  Serious: Yes (Other)
  Sender: FDA-Public Use
  Company Number: US-GILEAD-2020-0476312

PATIENT
  Age: 55 Year
  Sex: Female

DRUGS (6)
  1. VIREAD [Suspect]
     Active Substance: TENOFOVIR DISOPROXIL FUMARATE
     Indication: HIV infection
     Dosage: UNK
     Route: 048
     Dates: start: 200701, end: 201909
  2. ATRIPLA [Suspect]
     Active Substance: EFAVIRENZ\EMTRICITABINE\TENOFOVIR DISOPROXIL FUMARATE
     Indication: HIV infection
     Dosage: UNK
     Route: 048
     Dates: start: 200704, end: 201909
  3. ATRIPLA [Suspect]
     Active Substance: EFAVIRENZ\EMTRICITABINE\TENOFOVIR DISOPROXIL FUMARATE
     Dosage: UNK
     Route: 048
     Dates: start: 2005, end: 2019
  4. TRUVADA [Suspect]
     Active Substance: EMTRICITABINE\TENOFOVIR DISOPROXIL FUMARATE
     Indication: HIV infection
     Dosage: UNK
     Route: 048
     Dates: start: 200501, end: 200701
  5. TRUVADA [Suspect]
     Active Substance: EMTRICITABINE\TENOFOVIR DISOPROXIL FUMARATE
     Dosage: UNK
     Route: 048
     Dates: start: 20050901, end: 2019
  6. BIKTARVY [Concomitant]
     Active Substance: BICTEGRAVIR SODIUM\EMTRICITABINE\TENOFOVIR ALAFENAMIDE FUMARATE

REACTIONS (19)
  - Renal injury [Unknown]
  - Chronic kidney disease [Unknown]
  - Osteoporosis [Not Recovered/Not Resolved]
  - Multiple fractures [Not Recovered/Not Resolved]
  - Osteoporotic fracture [Not Recovered/Not Resolved]
  - Rib fracture [Recovered/Resolved]
  - Osteonecrosis [Unknown]
  - Bone density decreased [Not Recovered/Not Resolved]
  - Tooth loss [Not Recovered/Not Resolved]
  - Bone loss [Unknown]
  - Skeletal injury [Unknown]
  - Osteopenia [Not Recovered/Not Resolved]
  - Anhedonia [Unknown]
  - Anxiety [Unknown]
  - Glomerular filtration rate decreased [Not Recovered/Not Resolved]
  - Emotional distress [Unknown]
  - Pain [Unknown]
  - Osteoarthritis [Not Recovered/Not Resolved]
  - Bone density abnormal [Not Recovered/Not Resolved]

NARRATIVE: CASE EVENT DATE: 20081201
